FAERS Safety Report 7626520-4 (Version None)
Quarter: 2011Q3

REPORT INFORMATION
  Report Type: 
  Country: None (occurrence: None)
  Receive Date: 20110721
  Receipt Date: 20110712
  Transmission Date: 20111222
  Serious: Yes (Disabling, Other)
  Sender: FDA-Public Use
  Company Number: US-CELGENEUS-163-21880-11062094

PATIENT
  Sex: Male
  Weight: 96 kg

DRUGS (6)
  1. LANTUS [Concomitant]
     Route: 065
  2. DIOVAN [Concomitant]
     Route: 065
  3. REVLIMID [Suspect]
     Dosage: 10 MILLIGRAM
     Route: 048
     Dates: start: 20110414, end: 20110606
  4. LASIX [Concomitant]
     Route: 065
  5. HYDRALAZINE HCL [Concomitant]
     Route: 065
  6. ALDACTONE [Concomitant]
     Route: 065

REACTIONS (5)
  - DECREASED APPETITE [None]
  - JOINT SWELLING [None]
  - ABASIA [None]
  - FATIGUE [None]
  - MALAISE [None]
